FAERS Safety Report 6782660-3 (Version None)
Quarter: 2010Q2

REPORT INFORMATION
  Report Type: 
  Country: None (occurrence: None)
  Receive Date: 20100621
  Receipt Date: 20100614
  Transmission Date: 20101027
  Serious: Yes (Hospitalization)
  Sender: FDA-Public Use
  Company Number: US-SANOFI-AVENTIS-2010SA034668

PATIENT
  Sex: Male

DRUGS (1)
  1. CARAC [Suspect]
     Indication: SKIN CANCER
     Route: 061
     Dates: start: 20100601, end: 20100601

REACTIONS (5)
  - CHILLS [None]
  - DECREASED APPETITE [None]
  - INSOMNIA [None]
  - MALAISE [None]
  - TREMOR [None]
